FAERS Safety Report 7553882-9 (Version None)
Quarter: 2011Q2

REPORT INFORMATION
  Report Type: 
  Country: None (occurrence: None)
  Receive Date: 20110617
  Receipt Date: 20110610
  Transmission Date: 20111010
  Serious: Yes (Other)
  Sender: FDA-Public Use
  Company Number: US-JNJFOC-20100900404

PATIENT
  Sex: Male

DRUGS (2)
  1. LEVAQUIN [Suspect]
     Indication: ARTHRALGIA
     Route: 048
     Dates: start: 20090710
  2. LEVAQUIN [Suspect]
     Indication: JOINT INJURY
     Route: 048
     Dates: start: 20100701

REACTIONS (3)
  - PAPILLOMA [None]
  - ANAPHYLACTIC REACTION [None]
  - VOMITING [None]
